FAERS Safety Report 5134025-8 (Version None)
Quarter: 2006Q4

REPORT INFORMATION
  Report Type: 
  Country: None (occurrence: None)
  Receive Date: 20061018
  Receipt Date: 20061007
  Transmission Date: 20070319
  Serious: Yes (Other)
  Sender: FDA-Public Use
  Company Number: 2006SP000651

PATIENT
  Age: 48 Year
  Sex: Female

DRUGS (2)
  1. PEG-INTRON [Suspect]
     Indication: HEPATITIS C
     Dosage: SC
     Route: 058
     Dates: start: 20060802
  2. RIBAVIRIN [Suspect]
     Indication: HEPATITIS C
     Dosage: PO
     Route: 048
     Dates: start: 20060802

REACTIONS (21)
  - ANAEMIA [None]
  - ANXIETY [None]
  - BLOOD GLUCOSE INCREASED [None]
  - BLOOD POTASSIUM DECREASED [None]
  - CARDIOMEGALY [None]
  - DEHYDRATION [None]
  - DEPRESSION [None]
  - EATING DISORDER [None]
  - FATIGUE [None]
  - INCOHERENT [None]
  - INJECTION SITE ERYTHEMA [None]
  - INJECTION SITE WARMTH [None]
  - INSOMNIA [None]
  - MENTAL IMPAIRMENT [None]
  - NAUSEA [None]
  - PAIN [None]
  - PANIC ATTACK [None]
  - RASH [None]
  - SOMNOLENCE [None]
  - THIRST [None]
  - WEIGHT DECREASED [None]
